FAERS Safety Report 25236063 (Version 1)
Quarter: 2025Q2

REPORT INFORMATION
  Report Type: Spontaneous
  Country: US (occurrence: US)
  Receive Date: 20250424
  Receipt Date: 20250424
  Transmission Date: 20250716
  Serious: No
  Sender: ABBVIE
  Company Number: US-ABBVIE-6237780

PATIENT
  Sex: Female

DRUGS (1)
  1. BOTOX [Suspect]
     Active Substance: ONABOTULINUMTOXINA
     Indication: Skin wrinkling
     Route: 065
     Dates: start: 20240620, end: 20240620

REACTIONS (9)
  - Swelling [Unknown]
  - Injection site urticaria [Unknown]
  - Headache [Unknown]
  - Pain [Unknown]
  - Periorbital swelling [Recovered/Resolved]
  - Feeling hot [Unknown]
  - Eye contusion [Recovered/Resolved]
  - Swelling face [Recovered/Resolved]
  - Contusion [Recovered/Resolved]
